FAERS Safety Report 10222701 (Version 1)
Quarter: 2014Q2

REPORT INFORMATION
  Report Type: Spontaneous
  Country: IT (occurrence: IT)
  Receive Date: 20140606
  Receipt Date: 20140606
  Transmission Date: 20141212
  Serious: Yes (Hospitalization)
  Sender: FDA-Public Use
  Company Number: IT-BAYER-2014-081289

PATIENT
  Age: 76 Year
  Sex: Female

DRUGS (2)
  1. CARDIOASPIRIN [Suspect]
     Indication: THROMBOSIS PROPHYLAXIS
     Dosage: DAILY DOSE 100 MG
     Route: 048
     Dates: start: 20120101, end: 20140506
  2. LASIX [Suspect]
     Indication: HYPERTENSION
     Dosage: DAILY DOSE 25 MG
     Route: 048
     Dates: start: 20120101, end: 20140506

REACTIONS (2)
  - Anaemia [Recovering/Resolving]
  - Oedema peripheral [Recovering/Resolving]
